FAERS Safety Report 6840373-3 (Version None)
Quarter: 2010Q3

REPORT INFORMATION
  Report Type: 
  Country: None (occurrence: None)
  Receive Date: 20100714
  Receipt Date: 20100713
  Transmission Date: 20110219
  Serious: Yes (Hospitalization)
  Sender: FDA-Public Use
  Company Number: FI-PFIZER INC-2006126103

PATIENT
  Age: 68 Year
  Sex: Male
  Weight: 77 kg

DRUGS (18)
  1. SUNITINIB MALATE [Suspect]
     Indication: METASTATIC RENAL CELL CARCINOMA
     Dosage: 50 MG, 1X/DAY
     Route: 048
     Dates: start: 20060815, end: 20061009
  2. CLODRONATE DISODIUM [Concomitant]
     Route: 048
     Dates: start: 20060727, end: 20061019
  3. TENOX [Concomitant]
     Indication: INSOMNIA
     Route: 048
     Dates: start: 20060728, end: 20061025
  4. OXYCODONE HCL [Concomitant]
     Indication: BONE PAIN
     Route: 048
     Dates: start: 20060918
  5. OXYCODONE HCL [Concomitant]
     Route: 058
  6. LYRICA [Concomitant]
     Indication: BACK PAIN
     Route: 048
     Dates: start: 20060925
  7. NAPROMETIN [Concomitant]
     Indication: PAIN
     Route: 048
     Dates: start: 20050418, end: 20061012
  8. LAXOBERON [Concomitant]
     Route: 048
     Dates: start: 20060921
  9. NULYTELY [Concomitant]
     Indication: CONSTIPATION
     Route: 048
     Dates: start: 20060927
  10. KALCIPOS-D [Concomitant]
     Indication: HYPOCALCAEMIA
     Route: 048
     Dates: start: 20050711
  11. METOCLOPRAMIDE [Concomitant]
     Indication: NAUSEA
     Route: 048
     Dates: start: 20060928
  12. METOCLOPRAMIDE [Concomitant]
     Route: 042
  13. SERENASE [Concomitant]
     Route: 048
     Dates: start: 20061012, end: 20061024
  14. PROPRANOLOL [Concomitant]
     Indication: ARRHYTHMIA
     Route: 048
     Dates: start: 19980101
  15. ZOLPIDEM [Concomitant]
     Indication: INSOMNIA
     Route: 048
     Dates: start: 20030101
  16. ACETAMINOPHEN [Concomitant]
     Indication: PAIN
     Route: 048
     Dates: start: 20050101
  17. NYSTATIN [Concomitant]
     Indication: PAIN
     Route: 048
     Dates: start: 20060627
  18. PANTOPRAZOLE SODIUM [Concomitant]
     Dates: start: 20060922

REACTIONS (1)
  - RENAL FAILURE [None]
